FAERS Safety Report 20896416 (Version 1)
Quarter: 2022Q2

REPORT INFORMATION
  Report Type: Spontaneous
  Country: US (occurrence: US)
  Receive Date: 20220531
  Receipt Date: 20220531
  Transmission Date: 20220721
  Serious: No
  Sender: FDA-Public Use
  Company Number: US-PFIZER INC-202200761092

PATIENT
  Age: 73 Year
  Sex: Male
  Weight: 105.23 kg

DRUGS (1)
  1. PAXLOVID [Suspect]
     Active Substance: NIRMATRELVIR\RITONAVIR
     Indication: COVID-19 treatment
     Dosage: 3 IN THE MORNING AND 3 AT NIGHT, 1 WHITE TABLET AND 2 LIGHT PINK WITH EACH DOSE
     Dates: start: 20220520, end: 20220524

REACTIONS (4)
  - Drug ineffective [Unknown]
  - Asthenia [Unknown]
  - Headache [Unknown]
  - Cough [Unknown]

NARRATIVE: CASE EVENT DATE: 20220501
